FAERS Safety Report 4337278-9 (Version None)
Quarter: 2004Q2

REPORT INFORMATION
  Report Type: 
  Country: None (occurrence: None)
  Receive Date: 20040413
  Receipt Date: 20040309
  Transmission Date: 20050107
  Serious: Yes (Other)
  Sender: FDA-Public Use
  Company Number: PHFR2004GB01369

PATIENT
  Sex: Male

DRUGS (5)
  1. EXELON [Suspect]
     Indication: DEMENTIA
     Dosage: 4.5 MG, BID
     Dates: start: 20020801
  2. EXELON [Suspect]
     Dosage: 3 MG, TID
  3. SINEMET [Concomitant]
     Route: 065
  4. MIRAPEX [Concomitant]
     Route: 065
  5. EBIXA [Concomitant]
     Dosage: UNK, UNK
     Route: 065

REACTIONS (3)
  - CONDITION AGGRAVATED [None]
  - PARKINSON'S DISEASE [None]
  - URINARY INCONTINENCE [None]
